FAERS Safety Report 13152402 (Version 4)
Quarter: 2018Q1

REPORT INFORMATION
  Report Type: Report from Study
  Country: US (occurrence: US)
  Receive Date: 20170125
  Receipt Date: 20180103
  Transmission Date: 20180508
  Serious: Yes (Hospitalization)
  Sender: FDA-Public Use
  Company Number: US-ACTELION-A-US2015-118281

PATIENT
  Age: 45 Year
  Sex: Male
  Weight: 78.91 kg

DRUGS (7)
  1. OPSUMIT [Suspect]
     Active Substance: MACITENTAN
     Indication: PULMONARY HYPERTENSION
     Dosage: 10 MG, QD
     Route: 048
     Dates: start: 20141110
  2. VELETRI [Suspect]
     Active Substance: EPOPROSTENOL
     Dosage: 46.2 NG/KG, PER MIN
     Route: 042
     Dates: start: 20150128
  3. REVATIO [Concomitant]
     Active Substance: SILDENAFIL CITRATE
  4. OPSUMIT [Suspect]
     Active Substance: MACITENTAN
     Dosage: 10 MG, QD
     Route: 048
     Dates: start: 20141110
  5. VELETRI [Suspect]
     Active Substance: EPOPROSTENOL
     Indication: PULMONARY HYPERTENSION
     Dosage: 56.66 NG/KG, PER MIN
     Route: 042
  6. ELIQUIS [Concomitant]
     Active Substance: APIXABAN
  7. ADCIRCA [Concomitant]
     Active Substance: TADALAFIL

REACTIONS (20)
  - Platelet count decreased [Unknown]
  - Pain in jaw [Not Recovered/Not Resolved]
  - Diarrhoea [Unknown]
  - Generalised erythema [Unknown]
  - Hypotension [Unknown]
  - Oedema peripheral [Unknown]
  - Haematoma [Unknown]
  - Cardioversion [Unknown]
  - Pain in extremity [Unknown]
  - Joint swelling [Unknown]
  - Arthralgia [Unknown]
  - Atrial fibrillation [Unknown]
  - Musculoskeletal pain [Unknown]
  - Atrial flutter [Unknown]
  - Cardiac ablation [Unknown]
  - Biopsy bone marrow [Unknown]
  - Fluid retention [Unknown]
  - Palpitations [Unknown]
  - Rash [Unknown]
  - Skin discolouration [Unknown]

NARRATIVE: CASE EVENT DATE: 20150511
